FAERS Safety Report 8533891-3 (Version None)
Quarter: 2012Q3

REPORT INFORMATION
  Report Type: 
  Country: None (occurrence: None)
  Receive Date: 20120724
  Receipt Date: 20120716
  Transmission Date: 20120928
  Serious: Yes (Other)
  Sender: FDA-Public Use
  Company Number: CA-JNJFOC-20120708726

PATIENT
  Sex: Female
  Weight: 91 kg

DRUGS (2)
  1. MICARDIS [Concomitant]
     Route: 048
  2. STELARA [Suspect]
     Indication: PSORIASIS
     Dates: start: 20120124

REACTIONS (1)
  - DIVERTICULUM [None]
